FAERS Safety Report 17283783 (Version 3)
Quarter: 2020Q3

REPORT INFORMATION
  Report Type: Spontaneous
  Country: JP (occurrence: JP)
  Receive Date: 20200117
  Receipt Date: 20200826
  Transmission Date: 20201102
  Serious: Yes (Death, Hospitalization, Other)
  Sender: FDA-Public Use
  Company Number: JP-JAZZ-2020-JP-000550

PATIENT
  Age: 55 Year
  Sex: Male
  Weight: 78.3 kg

DRUGS (3)
  1. DEFITELIO [Suspect]
     Active Substance: DEFIBROTIDE SODIUM
     Indication: VENOOCCLUSIVE LIVER DISEASE
     Dosage: 25 MILLIGRAM/KILOGRAM, QD
     Route: 042
     Dates: start: 20191228, end: 20200111
  2. ACOALAN [Concomitant]
     Dosage: UNK
     Dates: start: 20200108, end: 20200110
  3. ACOALAN [Concomitant]
     Indication: PRODUCT USED FOR UNKNOWN INDICATION
     Dosage: UNK
     Dates: start: 20191230, end: 20200103

REACTIONS (3)
  - Venoocclusive liver disease [Fatal]
  - Disease progression [Fatal]
  - Hypotension [Not Recovered/Not Resolved]

NARRATIVE: CASE EVENT DATE: 20191228
